FAERS Safety Report 5524435-9 (Version None)
Quarter: 2007Q4

REPORT INFORMATION
  Report Type: 
  Country: None (occurrence: None)
  Receive Date: 20071122
  Receipt Date: 20071114
  Transmission Date: 20080405
  Serious: Yes (Hospitalization)
  Sender: FDA-Public Use
  Company Number: US-JNJFOC-20071105434

PATIENT
  Sex: Male
  Weight: 94.35 kg

DRUGS (9)
  1. FENTANYL TRANSDERMAL SYSTEM [Suspect]
     Route: 062
  2. FENTANYL TRANSDERMAL SYSTEM [Suspect]
     Dosage: 2X 100UG/HR PATCHES
     Route: 062
  3. FENTANYL TRANSDERMAL SYSTEM [Suspect]
     Dosage: 1X 100 UG/HR PATCH PLUS 1X 50 UG/HR PATCH
     Route: 062
  4. FENTANYL TRANSDERMAL SYSTEM [Suspect]
     Indication: MIGRAINE
     Route: 062
  5. DURAGESIC-100 [Suspect]
     Indication: MIGRAINE
     Route: 062
  6. SINGULAIR [Concomitant]
     Indication: ASTHMA
     Route: 048
  7. ALBUTEROL [Concomitant]
     Indication: ASTHMA
     Route: 055
  8. CRESTOR [Concomitant]
     Indication: HYPERTENSION
     Dosage: AT NIGHT
     Route: 048
  9. VERAPAMIL [Concomitant]
     Indication: BLOOD PRESSURE
     Route: 048

REACTIONS (4)
  - DIABETES MELLITUS [None]
  - HEADACHE [None]
  - MENINGITIS BACTERIAL [None]
  - WRONG TECHNIQUE IN DRUG USAGE PROCESS [None]
